FAERS Safety Report 7015385-X (Version None)
Quarter: 2010Q3

REPORT INFORMATION
  Report Type: 
  Country: None (occurrence: None)
  Receive Date: 20100922
  Receipt Date: 20100913
  Transmission Date: 20110219
  Serious: Yes (Hospitalization)
  Sender: FDA-Public Use
  Company Number: 2010US003776

PATIENT
  Age: 31 Year
  Sex: Female

DRUGS (4)
  1. PROGRAF [Suspect]
     Indication: RENAL TRANSPLANT
  2. THYMOGLOBULIN [Concomitant]
  3. SOLU-MEDROL [Concomitant]
  4. PREDNISONE [Concomitant]

REACTIONS (5)
  - ABDOMINAL ABSCESS [None]
  - ANURIA [None]
  - DISSEMINATED CYTOMEGALOVIRAL INFECTION [None]
  - GASTROINTESTINAL NECROSIS [None]
  - SYSTEMIC MYCOSIS [None]
